FAERS Safety Report 25898982 (Version 1)
Quarter: 2025Q4

REPORT INFORMATION
  Report Type: Spontaneous
  Country: EU (occurrence: EU)
  Receive Date: 20251009
  Receipt Date: 20251009
  Transmission Date: 20260117
  Serious: Yes (Other)
  Sender: BAXTER
  Company Number: None

PATIENT
  Age: 39 Year
  Sex: Male
  Weight: 155 kg

DRUGS (13)
  1. METRONIDAZOLE [Suspect]
     Active Substance: METRONIDAZOLE
     Indication: Diarrhoea infectious
     Dosage: 500 MG, 8 HOURS
     Route: 042
     Dates: start: 20250822, end: 20250825
  2. NEFOPAM HYDROCHLORIDE [Suspect]
     Active Substance: NEFOPAM HYDROCHLORIDE
     Indication: Analgesic therapy
     Dosage: 120 MG, 24 HOURS
     Route: 042
     Dates: start: 20250821, end: 20250825
  3. CEFEPIME [Suspect]
     Active Substance: CEFEPIME HYDROCHLORIDE
     Indication: Infection prophylaxis
     Dosage: 2 G, 8 HOURS
     Route: 042
     Dates: start: 20250822, end: 20250825
  4. METOCLOPRAMIDE [Suspect]
     Active Substance: METOCLOPRAMIDE
     Indication: Vomiting
     Dosage: 120 MG, 24 HOURS
     Route: 042
     Dates: start: 20250816, end: 20250825
  5. ONDANSETRON [Suspect]
     Active Substance: ONDANSETRON
     Indication: Vomiting
     Dosage: 8 MG, 24 HOURS
     Route: 042
     Dates: start: 20250813, end: 20250825
  6. BACTRIM [Concomitant]
     Active Substance: SULFAMETHOXAZOLE\TRIMETHOPRIM
     Dosage: 3 DOSAGE FORM, 1X A WEEK
     Route: 048
     Dates: start: 20250813, end: 20250827
  7. URSODIOL [Concomitant]
     Active Substance: URSODIOL
     Dosage: 750 MG, QD
     Route: 048
     Dates: start: 20250811, end: 20250902
  8. MONTMORILLONITE [Concomitant]
     Active Substance: MONTMORILLONITE
     Dosage: 9 G, QD
     Route: 048
     Dates: start: 20250811, end: 20250901
  9. FLUCONAZOLE [Concomitant]
     Active Substance: FLUCONAZOLE
     Dosage: 400 MG, QD
     Route: 048
     Dates: start: 20250820, end: 20250827
  10. ACETAMINOPHEN [Concomitant]
     Active Substance: ACETAMINOPHEN
     Dosage: 1000 MG, 6 HOURS
     Route: 048
     Dates: start: 20250821, end: 20250826
  11. RACECADOTRIL [Concomitant]
     Active Substance: RACECADOTRIL
     Dosage: 300 MG, QD
     Route: 048
     Dates: start: 20250817, end: 20250909
  12. VALACYCLOVIR HYDROCHLORIDE [Concomitant]
     Active Substance: VALACYCLOVIR HYDROCHLORIDE
     Dosage: 1000 MG, QD
     Route: 048
     Dates: start: 20250820, end: 20250827
  13. LEUCOVORIN CALCIUM [Concomitant]
     Active Substance: LEUCOVORIN CALCIUM
     Dosage: 1 DOSAGE FORM, 1X A WEEK
     Route: 048
     Dates: start: 20250817

REACTIONS (1)
  - Agitation [Recovered/Resolved]

NARRATIVE: CASE EVENT DATE: 20250825
